FAERS Safety Report 11233681 (Version 2)
Quarter: 2015Q3

REPORT INFORMATION
  Report Type: Report from Study
  Country: US (occurrence: US)
  Receive Date: 20150702
  Receipt Date: 20150918
  Transmission Date: 20151125
  Serious: Yes (Hospitalization)
  Sender: FDA-Public Use
  Company Number: US-MALLINCKRODT-T201503165

PATIENT
  Age: 82 Year
  Sex: Female

DRUGS (1)
  1. REPOSITORY CORTICOTROPIN INJECTION [Suspect]
     Active Substance: CORTICOTROPIN
     Indication: NEPHROTIC SYNDROME
     Dosage: 80 UNITS/TWICE PER WEEK
     Route: 058
     Dates: start: 20150312

REACTIONS (4)
  - Malaise [Unknown]
  - Renal disorder [Unknown]
  - Abdominal pain upper [Unknown]
  - Pneumonia [Unknown]

NARRATIVE: CASE EVENT DATE: 20150903
